FAERS Safety Report 19256933 (Version 3)
Quarter: 2021Q3

REPORT INFORMATION
  Report Type: Report from Study
  Country: US (occurrence: US)
  Receive Date: 20210514
  Receipt Date: 20210708
  Transmission Date: 20211014
  Serious: Yes (Hospitalization)
  Sender: FDA-Public Use
  Company Number: US-AGIOS-2104US02745

PATIENT

DRUGS (16)
  1. TIBSOVO [Suspect]
     Active Substance: IVOSIDENIB
     Indication: CHOLANGIOCARCINOMA
     Dosage: 250 MILLIGRAM, 2 TABLETS (500 MG), QD
     Route: 048
     Dates: start: 20191211
  2. PSYLLIUM HUSK                      /00029102/ [Concomitant]
     Active Substance: HERBALS\PLANTAGO OVATA SEED COAT
  3. VITAMIN D                          /00107901/ [Concomitant]
     Active Substance: ERGOCALCIFEROL
  4. SENNA                              /00142201/ [Concomitant]
     Active Substance: SENNA LEAF
  5. GLIMEPIRIDE. [Concomitant]
     Active Substance: GLIMEPIRIDE
  6. VITAMIN C [Concomitant]
     Active Substance: ASCORBIC ACID
  7. CALCIUM [Concomitant]
     Active Substance: CALCIUM
  8. SERTRALINE [Concomitant]
     Active Substance: SERTRALINE HYDROCHLORIDE
  9. SYMBICORT [Concomitant]
     Active Substance: BUDESONIDE\FORMOTEROL FUMARATE DIHYDRATE
  10. FISH OIL [Concomitant]
     Active Substance: FISH OIL
  11. TIBSOVO [Suspect]
     Active Substance: IVOSIDENIB
     Dosage: 250 MILLIGRAM, 2 TABLETS (500 MG), QD
     Route: 048
  12. ALBUTEROL                          /00139501/ [Concomitant]
     Active Substance: ALBUTEROL
  13. ESTRACE [Concomitant]
     Active Substance: ESTRADIOL
  14. LOPERAMIDE [Concomitant]
     Active Substance: LOPERAMIDE
  15. OSTEO BI?FLEX                      /01431201/ [Concomitant]
  16. ALIGN [Concomitant]
     Active Substance: BIFIDOBACTERIUM LONGUM SUBSP. INFANTIS

REACTIONS (5)
  - Arthritis [Recovered/Resolved]
  - Gout [Recovered/Resolved]
  - Fall [Recovered/Resolved]
  - Off label use [Unknown]
  - Limb injury [Recovered/Resolved]

NARRATIVE: CASE EVENT DATE: 20210426
